FAERS Safety Report 4990094-7 (Version None)
Quarter: 2006Q2

REPORT INFORMATION
  Report Type: 
  Country: None (occurrence: None)
  Receive Date: 20060503
  Receipt Date: 20051129
  Transmission Date: 20061013
  Serious: Yes (Death, Other)
  Sender: FDA-Public Use
  Company Number: US-MERCK-0511USA04483

PATIENT
  Age: 44 Year
  Sex: Male
  Weight: 80 kg

DRUGS (3)
  1. VIOXX [Suspect]
     Indication: SHOULDER PAIN
     Route: 048
     Dates: start: 20000426, end: 20030615
  2. VIOXX [Suspect]
     Indication: TENDONITIS
     Route: 048
     Dates: start: 20000426, end: 20030615
  3. TYLENOL (CAPLET) [Concomitant]
     Indication: ANALGESIC EFFECT
     Route: 065

REACTIONS (4)
  - ARTERIOSCLEROSIS [None]
  - CARDIAC ARREST [None]
  - CORONARY ARTERY THROMBOSIS [None]
  - DYSPEPSIA [None]
